FAERS Safety Report 7240823-7 (Version None)
Quarter: 2011Q1

REPORT INFORMATION
  Report Type: 
  Country: None (occurrence: None)
  Receive Date: 20110124
  Receipt Date: 20110118
  Transmission Date: 20110831
  Serious: Yes (Other)
  Sender: FDA-Public Use
  Company Number: TW-PFIZER INC-2011012329

PATIENT
  Sex: Male

DRUGS (2)
  1. NEURONTIN [Suspect]
     Indication: POST HERPETIC NEURALGIA
     Dosage: 600 MG, 3X/DAY
     Dates: start: 20110101
  2. NEURONTIN [Suspect]
     Dosage: 300 MG, 3X/DAY

REACTIONS (6)
  - SOMNOLENCE [None]
  - FLATULENCE [None]
  - TINNITUS [None]
  - MUSCULOSKELETAL STIFFNESS [None]
  - DYSKINESIA [None]
  - DRY MOUTH [None]
